FAERS Safety Report 14144251 (Version 1)
Quarter: 2017Q4

REPORT INFORMATION
  Report Type: Spontaneous
  Country: US (occurrence: None)
  Receive Date: 20171030
  Receipt Date: 20171030
  Transmission Date: 20180321
  Serious: Yes (Death)
  Sender: FDA-Public Use
  Company Number: None

PATIENT
  Sex: Female
  Weight: 60.33 kg

DRUGS (2)
  1. PROLIA [Suspect]
     Active Substance: DENOSUMAB
     Indication: OSTEOPOROSIS
     Dosage: Q6MONTH
     Route: 058
     Dates: start: 201310
  2. PROLIA [Suspect]
     Active Substance: DENOSUMAB
     Indication: ADVERSE EVENT
     Dosage: Q6MONTH
     Route: 058
     Dates: start: 201310

REACTIONS (1)
  - Death [None]
